FAERS Safety Report 7589182-0 (Version None)
Quarter: 2011Q3

REPORT INFORMATION
  Report Type: 
  Country: None (occurrence: None)
  Receive Date: 20110705
  Receipt Date: 20110621
  Transmission Date: 20111222
  Serious: Yes (Hospitalization)
  Sender: FDA-Public Use
  Company Number: CA-JNJFOC-20110610213

PATIENT
  Sex: Female
  Weight: 84 kg

DRUGS (1)
  1. REMICADE [Suspect]
     Indication: PSORIATIC ARTHROPATHY
     Route: 042
     Dates: start: 20110204

REACTIONS (14)
  - RED BLOOD CELL COUNT DECREASED [None]
  - MONOCYTE COUNT INCREASED [None]
  - NAUSEA [None]
  - MEAN CELL HAEMOGLOBIN CONCENTRATION INCREASED [None]
  - RED CELL DISTRIBUTION WIDTH INCREASED [None]
  - BLOOD GLUCOSE INCREASED [None]
  - MEAN CELL HAEMOGLOBIN INCREASED [None]
  - LYMPHOCYTE COUNT DECREASED [None]
  - BLOOD MAGNESIUM DECREASED [None]
  - RENAL CYST [None]
  - HAEMOGLOBIN DECREASED [None]
  - NEUTROPHIL COUNT INCREASED [None]
  - DIVERTICULUM INTESTINAL [None]
  - HAEMATOCRIT DECREASED [None]
